FAERS Safety Report 19291861 (Version 1)
Quarter: 2021Q2

REPORT INFORMATION
  Report Type: Spontaneous
  Country: US (occurrence: US)
  Receive Date: 20210524
  Receipt Date: 20210524
  Transmission Date: 20210717
  Serious: Yes (Hospitalization, Other)
  Sender: FDA-Public Use
  Company Number: US-DRREDDYS-USA/USA/21/0135744

PATIENT
  Age: 5 Year
  Sex: Male

DRUGS (5)
  1. LEFLUNOMIDE. [Interacting]
     Active Substance: LEFLUNOMIDE
     Indication: PRODUCT USED FOR UNKNOWN INDICATION
     Route: 048
  2. VINCRISTINE [Suspect]
     Active Substance: VINCRISTINE
     Indication: ACUTE LYMPHOCYTIC LEUKAEMIA
  3. LEFLUNOMIDE. [Interacting]
     Active Substance: LEFLUNOMIDE
     Dosage: DECREASED AND MAINTAINED AT 10MG DAILY
  4. MERCAPTOPURINE. [Suspect]
     Active Substance: MERCAPTOPURINE
     Indication: ACUTE LYMPHOCYTIC LEUKAEMIA
     Route: 048
  5. LEFLUNOMIDE. [Interacting]
     Active Substance: LEFLUNOMIDE

REACTIONS (6)
  - Drug interaction [Unknown]
  - Hypertension [Unknown]
  - Polyomavirus-associated nephropathy [Recovered/Resolved]
  - Pancytopenia [Unknown]
  - Acute kidney injury [Unknown]
  - Transaminases increased [Unknown]
